FAERS Safety Report 8876095 (Version 1)
Quarter: 2012Q4

REPORT INFORMATION
  Report Type: 
  Country: US (occurrence: US)
  Receive Date: 20121030
  Receipt Date: 20121030
  Transmission Date: 20130627
  Serious: No
  Sender: FDA-Public Use
  Company Number: US-ASTRAZENECA-2011SE68929

PATIENT
  Age: 52 Year
  Sex: Male

DRUGS (2)
  1. NEXIUM [Suspect]
     Route: 048
  2. PRILOSEC [Suspect]
     Route: 048

REACTIONS (5)
  - Cognitive disorder [Unknown]
  - Memory impairment [Unknown]
  - Dyspepsia [Unknown]
  - Drug dose omission [Unknown]
  - Drug ineffective [Unknown]
